FAERS Safety Report 4831110-2 (Version None)
Quarter: 2005Q4

REPORT INFORMATION
  Report Type: 
  Country: None (occurrence: None)
  Receive Date: 20051114
  Receipt Date: 20051031
  Transmission Date: 20060501
  Serious: Yes (Other)
  Sender: FDA-Public Use
  Company Number: OSCN-NO-0511S-0221

PATIENT
  Age: 46 Year
  Sex: Male
  Weight: 50 kg

DRUGS (2)
  1. OMNISCAN [Suspect]
     Indication: ANEURYSM
     Dosage: 15 ML SINGLE DOSE IV
     Route: 042
     Dates: start: 20051031, end: 20051031
  2. EPINEPHRINE [Concomitant]

REACTIONS (4)
  - ANAPHYLACTOID REACTION [None]
  - ANGINA PECTORIS [None]
  - ELECTROCARDIOGRAM ST SEGMENT DEPRESSION [None]
  - HEART RATE INCREASED [None]
